FAERS Safety Report 22243959 (Version 1)
Quarter: 2023Q2

REPORT INFORMATION
  Report Type: Other
  Country: TR (occurrence: TR)
  Receive Date: 20230424
  Receipt Date: 20230424
  Transmission Date: 20230721
  Serious: Yes (Hospitalization, Other)
  Sender: FDA-Public Use
  Company Number: TR-ALVOGEN-2023091306

PATIENT
  Age: 7 Year
  Sex: Female

DRUGS (3)
  1. CLINDAMYCIN [Suspect]
     Active Substance: CLINDAMYCIN
     Indication: Product used for unknown indication
     Route: 042
  2. AMPICILLIN [Suspect]
     Active Substance: AMPICILLIN
     Indication: Product used for unknown indication
     Route: 042
  3. SULBACTAM [Suspect]
     Active Substance: SULBACTAM
     Indication: Product used for unknown indication
     Route: 042

REACTIONS (2)
  - Serum sickness-like reaction [Unknown]
  - Condition aggravated [Unknown]
